FAERS Safety Report 14390178 (Version 2)
Quarter: 2018Q1

REPORT INFORMATION
  Report Type: Spontaneous
  Country: HR (occurrence: HR)
  Receive Date: 20180116
  Receipt Date: 20180209
  Transmission Date: 20180509
  Serious: Yes (Death)
  Sender: FDA-Public Use
  Company Number: HR-B.I. PHARMACEUTICALS,INC./RIDGEFIELD-2018-12-000098

PATIENT
  Age: 78 Year
  Sex: Female
  Weight: 65 kg

DRUGS (6)
  1. PRYLAR [Concomitant]
     Indication: HYPERTENSION
     Dosage: ADDITIONAL INFO: DF= 5+5 MG
     Route: 048
     Dates: start: 2016
  2. ORMIDOL [Concomitant]
     Active Substance: ATENOLOL
     Indication: ATRIAL FIBRILLATION
     Route: 048
     Dates: start: 20171222
  3. LEVOFLOXACIN. [Concomitant]
     Active Substance: LEVOFLOXACIN
     Indication: PRODUCT USED FOR UNKNOWN INDICATION
     Route: 048
     Dates: start: 20171220, end: 20171228
  4. ATHYRAZOL [Suspect]
     Active Substance: METHIMAZOLE
     Indication: HYPERTHYROIDISM
     Route: 048
     Dates: start: 20171221, end: 20180101
  5. PRADAXA [Suspect]
     Active Substance: DABIGATRAN ETEXILATE MESYLATE
     Indication: ATRIAL FIBRILLATION
     Route: 048
     Dates: start: 20171212, end: 20180101
  6. NORMABEL [Concomitant]
     Active Substance: DIAZEPAM
     Indication: ORGANIC BRAIN SYNDROME
     Route: 048
     Dates: start: 20171214

REACTIONS (5)
  - Haematuria [Not Recovered/Not Resolved]
  - Haemorrhagic diathesis [Fatal]
  - Contusion [Not Recovered/Not Resolved]
  - Petechiae [Not Recovered/Not Resolved]
  - Thrombocytopenia [Fatal]

NARRATIVE: CASE EVENT DATE: 20171228
